FAERS Safety Report 19698999 (Version 3)
Quarter: 2022Q3

REPORT INFORMATION
  Report Type: Spontaneous
  Country: FR (occurrence: FR)
  Receive Date: 20210813
  Receipt Date: 20220713
  Transmission Date: 20221026
  Serious: Yes (Other)
  Sender: FDA-Public Use
  Company Number: FR-GSKCCFEMEA-CASE-01278550_AE-48145

PATIENT

DRUGS (2)
  1. FLUTICASONE FUROATE\VILANTEROL TRIFENATATE [Suspect]
     Active Substance: FLUTICASONE FUROATE\VILANTEROL TRIFENATATE
     Indication: Product used for unknown indication
     Dosage: UNK, 92/22
  2. FLUTICASONE FUROATE\VILANTEROL TRIFENATATE [Suspect]
     Active Substance: FLUTICASONE FUROATE\VILANTEROL TRIFENATATE
     Dosage: UNK, 184/22

REACTIONS (6)
  - Asphyxia [Unknown]
  - Choking [Unknown]
  - Hypoventilation [Unknown]
  - Dyspnoea [Unknown]
  - Intentional product misuse [Unknown]
  - Product complaint [Unknown]
